FAERS Safety Report 14367093 (Version 6)
Quarter: 2021Q1

REPORT INFORMATION
  Report Type: Spontaneous
  Country: US (occurrence: US)
  Receive Date: 20180109
  Receipt Date: 20210124
  Transmission Date: 20210419
  Serious: Yes (Congenital Anomaly, Other)
  Sender: FDA-Public Use
  Company Number: PHEH2018US000675

PATIENT
  Sex: Male
  Weight: 26.2 kg

DRUGS (2)
  1. ZOFRAN [Suspect]
     Active Substance: ONDANSETRON HYDROCHLORIDE
     Indication: FOETAL EXPOSURE DURING PREGNANCY
     Route: 064
  2. ZOFRAN [Suspect]
     Active Substance: ONDANSETRON HYDROCHLORIDE
     Indication: FOETAL EXPOSURE DURING PREGNANCY
     Route: 064

REACTIONS (46)
  - Attention deficit hyperactivity disorder [Unknown]
  - Dermatitis diaper [Unknown]
  - Viral infection [Unknown]
  - Pneumonitis [Unknown]
  - Gastroenteritis [Unknown]
  - Jaundice neonatal [Unknown]
  - Gastrooesophageal reflux disease [Unknown]
  - Rhinorrhoea [Unknown]
  - Cough [Unknown]
  - Headache [Unknown]
  - Irritable bowel syndrome [Unknown]
  - Cleft palate [Unknown]
  - Fever neonatal [Unknown]
  - Rhinitis allergic [Unknown]
  - Back pain [Unknown]
  - Pneumonia [Unknown]
  - Respiratory distress [Unknown]
  - Injury [Unknown]
  - Asthma [Unknown]
  - Dermatitis atopic [Unknown]
  - Vomiting [Unknown]
  - Abdominal pain [Unknown]
  - Cystitis [Unknown]
  - Craniofacial deformity [Unknown]
  - Urinary tract infection neonatal [Unknown]
  - Ear infection [Unknown]
  - Sinusitis [Unknown]
  - Cleft lip [Unknown]
  - Otitis media [Unknown]
  - Arthralgia [Unknown]
  - Conjunctivitis [Unknown]
  - Upper respiratory tract infection [Unknown]
  - Enuresis [Unknown]
  - Palpitations [Unknown]
  - Nasal congestion [Unknown]
  - Developmental delay [Unknown]
  - Wheezing [Unknown]
  - Bronchitis [Unknown]
  - Affective disorder [Unknown]
  - Oropharyngeal pain [Unknown]
  - Limb injury [Unknown]
  - Foetal exposure during pregnancy [Unknown]
  - Cardiac murmur [Unknown]
  - Weight decreased [Unknown]
  - Decreased appetite [Unknown]
  - Swelling [Unknown]
